FAERS Safety Report 25357122 (Version 2)
Quarter: 2025Q3

REPORT INFORMATION
  Report Type: Report from Study
  Country: US (occurrence: US)
  Receive Date: 20250526
  Receipt Date: 20250803
  Transmission Date: 20251020
  Serious: Yes (Other)
  Sender: ALEXION PHARMACEUTICALS
  Company Number: US-AstraZeneca-CH-00874791A

PATIENT
  Sex: Female

DRUGS (1)
  1. ACALABRUTINIB [Suspect]
     Active Substance: ACALABRUTINIB
     Indication: Chronic lymphocytic leukaemia
     Dosage: 100 MILLIGRAM, BID
     Dates: start: 20240830

REACTIONS (5)
  - Urticarial vasculitis [Recovering/Resolving]
  - Pain [Unknown]
  - Rash [Recovering/Resolving]
  - Haemangioma of bone [Unknown]
  - Urticaria [Recovering/Resolving]
